FAERS Safety Report 8096156-2 (Version None)
Quarter: 2012Q1

REPORT INFORMATION
  Report Type: 
  Country: None (occurrence: None)
  Receive Date: 20120131
  Receipt Date: 20120120
  Transmission Date: 20120608
  Serious: Yes (Other)
  Sender: FDA-Public Use
  Company Number: FR-VIIV HEALTHCARE LIMITED-B0776466A

PATIENT
  Sex: Male

DRUGS (4)
  1. ISENTRESS [Suspect]
     Indication: HIV INFECTION CDC CATEGORY A2
     Dosage: 400MG TWICE PER DAY
     Route: 048
     Dates: start: 20081016
  2. ZIAGEN [Suspect]
     Indication: HIV INFECTION CDC CATEGORY A2
     Dosage: 300MG TWICE PER DAY
     Route: 048
     Dates: start: 20020315, end: 20110315
  3. REYATAZ [Suspect]
     Indication: HIV INFECTION CDC CATEGORY A2
     Dosage: 200MG TWICE PER DAY
     Route: 048
     Dates: start: 20050415, end: 20110315
  4. ABACAVIR SULFATE [Suspect]
     Dates: start: 20110315

REACTIONS (2)
  - LIVER DISORDER [None]
  - DYSLIPIDAEMIA [None]
